FAERS Safety Report 18255889 (Version 1)
Quarter: 2020Q3

REPORT INFORMATION
  Report Type: Other
  Country: US (occurrence: US)
  Receive Date: 20200910
  Receipt Date: 20200910
  Transmission Date: 20201103
  Serious: No
  Sender: FDA-Public Use
  Company Number: US-LEADIANT BIOSCIENCES INC-2019STPI000507

PATIENT

DRUGS (9)
  1. ATENOLOL. [Concomitant]
     Active Substance: ATENOLOL
  2. NYSTATIN. [Concomitant]
     Active Substance: NYSTATIN
  3. OLANZAPINE. [Concomitant]
     Active Substance: OLANZAPINE
  4. MATULANE [Suspect]
     Active Substance: PROCARBAZINE HYDROCHLORIDE
     Indication: BRAIN NEOPLASM MALIGNANT
     Dosage: 150 MILLIGRAM QPM FOR 14DAYS EVERY 6 WEEKS
     Route: 048
     Dates: start: 20190730, end: 201910
  5. ONDANSETRON [Concomitant]
     Active Substance: ONDANSETRON
  6. DIFLUCAN [Concomitant]
     Active Substance: FLUCONAZOLE
  7. GLEOSTINE [Concomitant]
     Active Substance: LOMUSTINE
  8. NORVASC [Concomitant]
     Active Substance: AMLODIPINE BESYLATE
  9. KEPPRA [Concomitant]
     Active Substance: LEVETIRACETAM

REACTIONS (1)
  - Drug ineffective [Not Recovered/Not Resolved]
